FAERS Safety Report 14614653 (Version 1)
Quarter: 2018Q1

REPORT INFORMATION
  Report Type: Spontaneous
  Country: US (occurrence: US)
  Receive Date: 20180308
  Receipt Date: 20180308
  Transmission Date: 20180509
  Serious: No
  Sender: FDA-Public Use
  Company Number: US-ASTRAZENECA-2018SE29004

PATIENT
  Age: 2900 Week
  Sex: Male
  Weight: 161 kg

DRUGS (2)
  1. BYDUREON [Suspect]
     Active Substance: EXENATIDE
     Indication: BLOOD GLUCOSE INCREASED
     Route: 058
     Dates: start: 20180303
  2. METFORMIN [Concomitant]
     Active Substance: METFORMIN HYDROCHLORIDE
     Indication: BLOOD GLUCOSE INCREASED
     Route: 048

REACTIONS (3)
  - Insomnia [Unknown]
  - Blood glucose increased [Unknown]
  - Pollakiuria [Unknown]

NARRATIVE: CASE EVENT DATE: 20180303
